FAERS Safety Report 8030899-1 (Version None)
Quarter: 2012Q1

REPORT INFORMATION
  Report Type: 
  Country: None (occurrence: None)
  Receive Date: 20120109
  Receipt Date: 20120104
  Transmission Date: 20120608
  Serious: Yes (Hospitalization, Other)
  Sender: FDA-Public Use
  Company Number: US-ROCHE-661422

PATIENT
  Sex: Female

DRUGS (3)
  1. ACCUTANE [Suspect]
     Indication: ACNE
     Dosage: FIRST COURSE
     Route: 065
  2. CLEOCIN HYDROCHLORIDE [Concomitant]
     Indication: ACNE
  3. ACCUTANE [Suspect]
     Dosage: SECOND COURSE
     Route: 065

REACTIONS (10)
  - ANAL ABSCESS [None]
  - SUICIDAL IDEATION [None]
  - OSTEONECROSIS [None]
  - INFLAMMATORY BOWEL DISEASE [None]
  - ANAL FISTULA [None]
  - DEPRESSION [None]
  - COLITIS ULCERATIVE [None]
  - ANAL STENOSIS [None]
  - CROHN'S DISEASE [None]
  - COLONIC POLYP [None]
